FAERS Safety Report 21346957 (Version 1)
Quarter: 2022Q3

REPORT INFORMATION
  Report Type: Spontaneous
  Country: US (occurrence: None)
  Receive Date: 20220916
  Receipt Date: 20220916
  Transmission Date: 20221027
  Serious: Yes (Death)
  Sender: FDA-Public Use
  Company Number: None

PATIENT
  Sex: Male

DRUGS (1)
  1. ABIRATERONE [Suspect]
     Active Substance: ABIRATERONE
     Dosage: FREQUENCY : DAILY;?
     Route: 048

REACTIONS (8)
  - Illness [None]
  - Thrombosis [None]
  - Bladder perforation [None]
  - Bladder cancer [None]
  - Prostatic haemorrhage [None]
  - Blood potassium decreased [None]
  - Oxygen saturation decreased [None]
  - Hypotension [None]
